FAERS Safety Report 18800303 (Version 1)
Quarter: 2021Q1

REPORT INFORMATION
  Report Type: Spontaneous
  Country: US (occurrence: US)
  Receive Date: 20210128
  Receipt Date: 20210128
  Transmission Date: 20210419
  Serious: Yes (Hospitalization)
  Sender: FDA-Public Use
  Company Number: None

PATIENT
  Sex: Male

DRUGS (38)
  1. CALCIUM [Concomitant]
     Active Substance: CALCIUM
  2. GARLIC. [Concomitant]
     Active Substance: GARLIC
  3. LOSARTAN. [Concomitant]
     Active Substance: LOSARTAN
  4. NEO SYNPHRINE [Concomitant]
  5. PENICILLIN VK [Concomitant]
     Active Substance: PENICILLIN V POTASSIUM
  6. POSACONAZOLE [Concomitant]
     Active Substance: POSACONAZOLE
  7. RANITIDINE. [Concomitant]
     Active Substance: RANITIDINE
  8. VITAMIN D3 [Concomitant]
     Active Substance: CHOLECALCIFEROL
  9. TACROLIMUS. [Suspect]
     Active Substance: TACROLIMUS
     Indication: LUNG TRANSPLANT
     Dosage: ?          OTHER FREQUENCY:EVERY 12 HOURS;?
     Route: 048
     Dates: start: 20140430
  10. COZAAR [Concomitant]
     Active Substance: LOSARTAN POTASSIUM
  11. LEVAQUIN [Concomitant]
     Active Substance: LEVOFLOXACIN
  12. NASAL SPR [Concomitant]
  13. PREDNISONE. [Concomitant]
     Active Substance: PREDNISONE
  14. ALBUTEROL. [Concomitant]
     Active Substance: ALBUTEROL
  15. OMEPRAZOLE. [Concomitant]
     Active Substance: OMEPRAZOLE
  16. BACTRIM [Concomitant]
     Active Substance: SULFAMETHOXAZOLE\TRIMETHOPRIM
  17. CELLCEPT [Concomitant]
     Active Substance: MYCOPHENOLATE MOFETIL\MYCOPHENOLATE MOFETIL HYDROCHLORIDE
  18. TOB [Concomitant]
  19. VITAMIN E [Concomitant]
     Active Substance: .ALPHA.-TOCOPHEROL
  20. AZITHROMYCIN ANHYDROUS. [Concomitant]
     Active Substance: AZITHROMYCIN ANHYDROUS
  21. CALCITROL [Concomitant]
  22. ROPINROLE [Concomitant]
     Active Substance: ROPINIROLE
  23. CREON [Concomitant]
     Active Substance: PANCRELIPASE AMYLASE\PANCRELIPASE LIPASE\PANCRELIPASE PROTEASE
  24. FLUTICASONE. [Concomitant]
     Active Substance: FLUTICASONE
  25. FOSAMAX [Concomitant]
     Active Substance: ALENDRONATE SODIUM
  26. HYDRALAZINE [Concomitant]
     Active Substance: HYDRALAZINE HYDROCHLORIDE
  27. LANSOPRAZOLE. [Concomitant]
     Active Substance: LANSOPRAZOLE
  28. RASPBERRY SYRUP [Concomitant]
  29. SODIUM BICARB [Concomitant]
     Active Substance: SODIUM BICARBONATE
  30. ANUCORT HC [Concomitant]
  31. NOXAFIL [Concomitant]
     Active Substance: POSACONAZOLE
  32. TOBRAMYCIN. [Concomitant]
     Active Substance: TOBRAMYCIN
  33. URSODIOL. [Concomitant]
     Active Substance: URSODIOL
  34. ACTIGALL [Concomitant]
     Active Substance: URSODIOL
  35. FOLIC ACID. [Concomitant]
     Active Substance: FOLIC ACID
  36. MONTELUKAST [Concomitant]
     Active Substance: MONTELUKAST SODIUM
  37. PROGRAF [Concomitant]
     Active Substance: TACROLIMUS
  38. SMZTMP [Concomitant]

REACTIONS (1)
  - Pneumonia [None]
